FAERS Safety Report 12720227 (Version 1)
Quarter: 2016Q3

REPORT INFORMATION
  Report Type: Report from Study
  Country: US (occurrence: US)
  Receive Date: 20160907
  Receipt Date: 20160907
  Transmission Date: 20161109
  Serious: Yes (Other)
  Sender: FDA-Public Use
  Company Number: US-AMGEN-USASL2016110312

PATIENT
  Age: 73 Year
  Sex: Female
  Weight: 82.54 kg

DRUGS (1)
  1. NPLATE [Suspect]
     Active Substance: ROMIPLOSTIM
     Indication: IMMUNE THROMBOCYTOPENIC PURPURA
     Dosage: 150 MUG, QWK
     Route: 065
     Dates: start: 20100403

REACTIONS (8)
  - Platelet count decreased [Unknown]
  - Heart rate abnormal [Recovered/Resolved]
  - Cyst [Unknown]
  - Intentional product misuse [Unknown]
  - Shoulder arthroplasty [Unknown]
  - Knee arthroplasty [Unknown]
  - Diplopia [Not Recovered/Not Resolved]
  - Migraine [Recovered/Resolved]

NARRATIVE: CASE EVENT DATE: 2016
